FAERS Safety Report 8810410 (Version 2)
Quarter: 2012Q4

REPORT INFORMATION
  Report Type: 
  Country: AR (occurrence: AR)
  Receive Date: 20120926
  Receipt Date: 20121023
  Transmission Date: 20130627
  Serious: No
  Sender: FDA-Public Use
  Company Number: AR-AMGEN-ARGSP2012060117

PATIENT
  Age: 54 Year
  Sex: Female

DRUGS (5)
  1. ENBREL [Suspect]
     Indication: RHEUMATOID ARTHRITIS
     Dosage: 50 mg, weekly
     Route: 058
     Dates: start: 20100801
  2. T4 [Concomitant]
     Dosage: UNK
  3. LANSOPRAZOLE [Concomitant]
     Dosage: UNK
  4. PILOCARPINE MARTINET [Concomitant]
     Dosage: UNK
  5. ARCOXIA [Concomitant]
     Dosage: UNK

REACTIONS (1)
  - Arthralgia [Recovered/Resolved]
